FAERS Safety Report 13959930 (Version 7)
Quarter: 2019Q1

REPORT INFORMATION
  Report Type: Spontaneous
  Country: US (occurrence: US)
  Receive Date: 20170911
  Receipt Date: 20190214
  Transmission Date: 20190417
  Serious: Yes (Hospitalization)
  Sender: FDA-Public Use
  Company Number: US-DSJP-DSU-2017-136149

PATIENT

DRUGS (2)
  1. BENICAR [Suspect]
     Active Substance: OLMESARTAN MEDOXOMIL
     Indication: PRODUCT USED FOR UNKNOWN INDICATION
     Dosage: 20 MG, UNK
     Route: 048
     Dates: start: 20140220, end: 20170802
  2. BENICAR [Suspect]
     Active Substance: OLMESARTAN MEDOXOMIL
     Dosage: 5 MG, UNK
     Route: 048
     Dates: start: 20140220, end: 20170802

REACTIONS (11)
  - Weight decreased [Unknown]
  - Haemorrhoids [Unknown]
  - Cholecystitis chronic [Recovered/Resolved]
  - Gastrooesophageal reflux disease [Recovering/Resolving]
  - Large intestine polyp [Recovered/Resolved]
  - Barrett^s oesophagus [Unknown]
  - Diverticulum intestinal [Unknown]
  - Chronic gastritis [Not Recovered/Not Resolved]
  - Oesophageal candidiasis [Not Recovered/Not Resolved]
  - Hiatus hernia [Unknown]
  - Constipation [Unknown]

NARRATIVE: CASE EVENT DATE: 201412
